FAERS Safety Report 12639705 (Version 1)
Quarter: 2016Q3

REPORT INFORMATION
  Report Type: Spontaneous
  Country: US (occurrence: None)
  Receive Date: 20160809
  Receipt Date: 20160809
  Transmission Date: 20161109
  Serious: No
  Sender: FDA-Public Use
  Company Number: None

PATIENT

DRUGS (1)
  1. NOREPINEPHRINE [Suspect]
     Active Substance: NOREPINEPHRINE\NOREPINEPHRINE BITARTRATE
     Dates: start: 20160720

REACTIONS (3)
  - Drug effect decreased [None]
  - Product packaging issue [None]
  - Incorrect dose administered [None]

NARRATIVE: CASE EVENT DATE: 20160720
